FAERS Safety Report 8845829 (Version 1)
Quarter: 2012Q4

REPORT INFORMATION
  Report Type: 
  Country: US (occurrence: US)
  Receive Date: 20121017
  Receipt Date: 20121017
  Transmission Date: 20130627
  Serious: Yes (Death, Hospitalization)
  Sender: FDA-Public Use
  Company Number: US-ROCHE-1131996

PATIENT
  Sex: Female

DRUGS (2)
  1. XELODA [Suspect]
     Indication: METASTASES TO LIVER
     Route: 048
     Dates: start: 20111129, end: 20111205
  2. XELODA [Suspect]
     Indication: RECTAL CANCER METASTATIC

REACTIONS (2)
  - Rectal cancer [Fatal]
  - Disease progression [Unknown]
